FAERS Safety Report 4717060-0 (Version None)
Quarter: 2005Q3

REPORT INFORMATION
  Report Type: 
  Country: None (occurrence: None)
  Receive Date: 20050715
  Receipt Date: 20050705
  Transmission Date: 20060218
  Serious: Yes (Other)
  Sender: FDA-Public Use
  Company Number: 2005097737

PATIENT
  Age: 90 Year
  Sex: Female
  Weight: 90 kg

DRUGS (1)
  1. UNASYN [Suspect]
     Indication: URINARY TRACT INFECTION
     Dosage: INTRAVENOUS
     Route: 042

REACTIONS (2)
  - PRURITUS [None]
  - RASH [None]
